FAERS Safety Report 13126033 (Version 2)
Quarter: 2017Q1

REPORT INFORMATION
  Report Type: Spontaneous
  Country: US (occurrence: US)
  Receive Date: 20170118
  Receipt Date: 20170321
  Transmission Date: 20170428
  Serious: Yes (Hospitalization, Other)
  Sender: FDA-Public Use
  Company Number: US-NOVOPROD-526491

PATIENT
  Age: 51 Year
  Sex: Female
  Weight: 58.5 kg

DRUGS (1)
  1. NOVOLOG [Suspect]
     Active Substance: INSULIN ASPART
     Indication: TYPE 1 DIABETES MELLITUS
     Dosage: SLIDING SCALE BOLUSES
     Route: 058
     Dates: start: 201312

REACTIONS (5)
  - Hypothermia [Recovered/Resolved]
  - Deafness [Unknown]
  - Diabetic ketoacidosis [Recovered/Resolved]
  - Hypoglycaemia unawareness [Unknown]
  - Hyperglycaemic unconsciousness [Recovered/Resolved]

NARRATIVE: CASE EVENT DATE: 20161226
